FAERS Safety Report 4590288-9 (Version None)
Quarter: 2005Q1

REPORT INFORMATION
  Report Type: 
  Country: None (occurrence: None)
  Receive Date: 20050217
  Receipt Date: 20050203
  Transmission Date: 20050727
  Serious: Yes (Hospitalization)
  Sender: FDA-Public Use
  Company Number: A02200500296

PATIENT
  Age: 83 Year
  Sex: Female

DRUGS (6)
  1. PLAVIX [Suspect]
     Indication: ARTERITIS
     Dosage: 75 MG OD, ORAL
     Route: 048
  2. SINGULAIR [Suspect]
     Indication: ASTHMA
     Dosage: 10 MG QD, ORAL
     Route: 048
  3. ZANIDIP (LERCANIDIPINE HYDROCHLORIDE) - TABLET 10 MG [Suspect]
     Indication: HYPERTENSION
     Dosage: 10 MG OD, ORAL
     Route: 048
     Dates: end: 20041201
  4. OMEPRAZOLE [Suspect]
     Indication: DYSPEPSIA
     Dosage: 20 MG OD, ORAL
     Route: 048
  5. FLECAINIDE ACETATE [Suspect]
     Indication: ARRHYTHMIA
     Dosage: 100 MG OD, ORAL
     Route: 048
  6. NPH INSULIN (INSULIN INJECTION, ISOPHANE) - SUSPENSION [Suspect]
     Indication: DIABETES MELLITUS
     Dosage: 14 IU QD, SUBCUTANEOUS
     Route: 058
     Dates: end: 20041201

REACTIONS (11)
  - ATRIOVENTRICULAR BLOCK FIRST DEGREE [None]
  - BLOOD PRESSURE DIASTOLIC INCREASED [None]
  - DEHYDRATION [None]
  - HEART RATE INCREASED [None]
  - HYPERHIDROSIS [None]
  - HYPOGLYCAEMIA [None]
  - LOSS OF CONSCIOUSNESS [None]
  - MALAISE [None]
  - MENTAL STATUS CHANGES [None]
  - ORTHOSTATIC HYPOTENSION [None]
  - VENTRICULAR EXTRASYSTOLES [None]
